FAERS Safety Report 5139259-4 (Version None)
Quarter: 2006Q4

REPORT INFORMATION
  Report Type: 
  Country: None (occurrence: None)
  Receive Date: 20061023
  Receipt Date: 20061009
  Transmission Date: 20070319
  Serious: Yes (Death, Hospitalization)
  Sender: FDA-Public Use
  Company Number: US200609001233

PATIENT
  Age: 73 Year
  Sex: Female

DRUGS (22)
  1. FORTEO [Suspect]
     Indication: OSTEOPOROSIS
     Dates: start: 20060101
  2. FORTEO [Concomitant]
  3. OMEPRAZOLE [Concomitant]
  4. SUCRALFATE (SUCRALFATE) TABLET [Concomitant]
  5. MARINOL (DRONABINOL) TABLET [Concomitant]
  6. HYDROCORTISONE [Concomitant]
  7. IMODIUM [Concomitant]
  8. KLONOPIN [Concomitant]
  9. CALCIUM WITH VITAMIN D (CALCIUM PHOSPHATE, CALCIUM SODIUM LACTATE, ERG [Concomitant]
  10. PHYTONADIONE [Concomitant]
  11. POTASSIUM (POTASSIUM) [Concomitant]
  12. ENALAPRIL MALEATE [Concomitant]
  13. CENTRUM (MINERALS NOS VITAMINS NOS) [Concomitant]
  14. NORTRIPTYLINE HCL [Concomitant]
  15. METHOTREXATE [Concomitant]
  16. PRAVACHOL [Concomitant]
  17. ARICEPT [Concomitant]
  18. DIGOXIN (DIGOXIN) PILL (EXCEPT TABLETS) [Concomitant]
  19. COREG [Concomitant]
  20. FOLIC ACID (FOLIC ACID WITH VITAMINS-MINERALS) TABLET [Concomitant]
  21. COUMADIN [Concomitant]
  22. RISPERDAL [Concomitant]

REACTIONS (11)
  - ADRENAL INSUFFICIENCY [None]
  - ASTHENIA [None]
  - CARDIAC FAILURE CONGESTIVE [None]
  - CARDIAC VALVE DISEASE [None]
  - CORONARY ARTERY DISEASE [None]
  - DEMENTIA [None]
  - HYPERTENSION [None]
  - IMPAIRED HEALING [None]
  - INTUSSUSCEPTION [None]
  - LUNG DISORDER [None]
  - PNEUMONIA ASPIRATION [None]
